FAERS Safety Report 7256176-4 (Version None)
Quarter: 2011Q1

REPORT INFORMATION
  Report Type: 
  Country: None (occurrence: None)
  Receive Date: 20110129
  Receipt Date: 20100825
  Transmission Date: 20110831
  Serious: No
  Sender: FDA-Public Use
  Company Number: PR-ABBOTT-10P-131-0666124-00

PATIENT
  Sex: Female
  Weight: 74.91 kg

DRUGS (5)
  1. NABUMETONE [Concomitant]
     Indication: MUSCLE SPASMS
     Route: 048
  2. HUMIRA [Suspect]
     Indication: RHEUMATOID ARTHRITIS
  3. CYCLOBENZAPRINE [Concomitant]
     Indication: MUSCLE SPASMS
     Route: 048
  4. HUMIRA [Suspect]
     Indication: PSORIASIS
     Route: 058
     Dates: start: 20100101
  5. METOPROLOL [Concomitant]
     Indication: HYPERTENSION
     Route: 048

REACTIONS (4)
  - MUSCLE SPASMS [None]
  - HEADACHE [None]
  - VERTIGO [None]
  - DIZZINESS [None]
